FAERS Safety Report 4690131-3 (Version None)
Quarter: 2005Q2

REPORT INFORMATION
  Report Type: 
  Country: None (occurrence: None)
  Receive Date: 20050613
  Receipt Date: 20050601
  Transmission Date: 20051028
  Serious: Yes (Hospitalization, Disabling, Other)
  Sender: FDA-Public Use
  Company Number: 2005_000021

PATIENT
  Age: 45 Year
  Sex: Female

DRUGS (9)
  1. DEPOCYT [Suspect]
     Indication: MENINGEAL LEUKAEMIA
     Dosage: 50 MG; EVERY OTHER WEEK; INTRATHECAL
     Route: 039
     Dates: start: 20050120, end: 20050224
  2. TENORMIN [Concomitant]
  3. DEROXAT [Concomitant]
  4. PRIMPERAN INJ [Concomitant]
  5. TRAMADOL HCL [Concomitant]
  6. PURINETHOL [Concomitant]
  7. METHOTREXATE [Concomitant]
  8. TRILEPTAL [Concomitant]
  9. VALIUM [Concomitant]

REACTIONS (10)
  - CENTRAL NERVOUS SYSTEM LESION [None]
  - DYSKINESIA [None]
  - EYE DISORDER [None]
  - HAEMOGLOBIN DECREASED [None]
  - LEUKAEMIA RECURRENT [None]
  - LEUKOPENIA [None]
  - NEUTROPHIL COUNT DECREASED [None]
  - PERIVENTRICULAR LEUKOMALACIA [None]
  - PETIT MAL EPILEPSY [None]
  - VOMITING [None]
